FAERS Safety Report 8255281-3 (Version None)
Quarter: 2012Q1

REPORT INFORMATION
  Report Type: 
  Country: None (occurrence: None)
  Receive Date: 20120322
  Receipt Date: 20111216
  Transmission Date: 20120608
  Serious: Yes (Hospitalization)
  Sender: FDA-Public Use
  Company Number: UTC-012206

PATIENT
  Age: 54 Year
  Sex: Male
  Weight: 88.64 kg

DRUGS (6)
  1. DIURETICS (DIURETICS) [Concomitant]
  2. OXYGEN (OXYGEN) [Concomitant]
  3. TYVASO [Suspect]
     Indication: PULMONARY HYPERTENSION
     Dosage: 72 MCG (18 MCG, 4 IN 1 D), INHALATION 120 MCG (30 MCG, 4 IN 1 D), INHALATION
     Route: 055
     Dates: start: 20110706
  4. TYVASO [Suspect]
     Indication: PULMONARY ARTERIAL HYPERTENSION
     Dosage: 72 MCG (18 MCG, 4 IN 1 D), INHALATION 120 MCG (30 MCG, 4 IN 1 D), INHALATION
     Route: 055
     Dates: start: 20110706
  5. TYVASO [Suspect]
     Indication: PULMONARY HYPERTENSION
     Dosage: 72 MCG (18 MCG, 4 IN 1 D), INHALATION 120 MCG (30 MCG, 4 IN 1 D), INHALATION
     Route: 055
     Dates: start: 20110616
  6. TYVASO [Suspect]
     Indication: PULMONARY ARTERIAL HYPERTENSION
     Dosage: 72 MCG (18 MCG, 4 IN 1 D), INHALATION 120 MCG (30 MCG, 4 IN 1 D), INHALATION
     Route: 055
     Dates: start: 20110616

REACTIONS (8)
  - MIDDLE INSOMNIA [None]
  - DYSPNOEA [None]
  - MALAISE [None]
  - LETHARGY [None]
  - OEDEMA [None]
  - FATIGUE [None]
  - OXYGEN SATURATION DECREASED [None]
  - MOTOR DYSFUNCTION [None]
